FAERS Safety Report 8183983-6 (Version None)
Quarter: 2012Q1

REPORT INFORMATION
  Report Type: 
  Country: None (occurrence: None)
  Receive Date: 20120305
  Receipt Date: 20120223
  Transmission Date: 20120608
  Serious: Yes (Hospitalization)
  Sender: FDA-Public Use
  Company Number: US-ROCHE-1043551

PATIENT
  Sex: Male
  Weight: 72.64 kg

DRUGS (8)
  1. MORPHINE [Concomitant]
     Indication: PAIN
     Route: 048
  2. AVASTIN [Suspect]
     Indication: COLORECTAL CANCER METASTATIC
     Route: 042
     Dates: start: 20110901, end: 20120201
  3. AMITRIPTYLINE HCL [Concomitant]
     Route: 048
  4. PERCOCET [Concomitant]
     Indication: PAIN
     Route: 048
  5. FLEXERIL [Concomitant]
  6. LYRICA [Concomitant]
  7. PHENERGAN [Concomitant]
     Route: 048
  8. ZOFRAN [Concomitant]
     Route: 048

REACTIONS (3)
  - ABSCESS [None]
  - ABSCESS DRAINAGE [None]
  - IMPAIRED HEALING [None]
